FAERS Safety Report 15605699 (Version 1)
Quarter: 2018Q4

REPORT INFORMATION
  Report Type: Spontaneous
  Country: FR (occurrence: FR)
  Receive Date: 20181112
  Receipt Date: 20181112
  Transmission Date: 20190205
  Serious: Yes (Other)
  Sender: FDA-Public Use
  Company Number: FR-ACCORD-091556

PATIENT
  Age: 72 Year
  Sex: Male
  Weight: 87 kg

DRUGS (12)
  1. DEXERYL [Concomitant]
  2. METHOTREXATE. [Suspect]
     Active Substance: METHOTREXATE
     Indication: PSORIASIS
     Route: 048
     Dates: start: 20170829
  3. TAHOR [Concomitant]
     Active Substance: ATORVASTATIN CALCIUM
  4. CYMBALTA [Concomitant]
     Active Substance: DULOXETINE HYDROCHLORIDE
  5. DOLIPRANE [Concomitant]
     Active Substance: ACETAMINOPHEN
  6. UVEDOSE [Concomitant]
     Active Substance: CHOLECALCIFEROL
  7. SPECIAFOLDINE [Concomitant]
     Active Substance: FOLIC ACID
  8. ATACAND [Concomitant]
     Active Substance: CANDESARTAN CILEXETIL
  9. OTEZLA [Suspect]
     Active Substance: APREMILAST
     Indication: PSORIASIS
     Route: 048
     Dates: start: 20171003
  10. CODOLIPRANE [Concomitant]
     Active Substance: ACETAMINOPHEN\CODEINE PHOSPHATE
  11. CORTANCYL [Concomitant]
     Active Substance: PREDNISONE
  12. DAIVOBET [Concomitant]
     Active Substance: BETAMETHASONE DIPROPIONATE\CALCIPOTRIENE

REACTIONS (1)
  - Tooth abscess [Recovered/Resolved]

NARRATIVE: CASE EVENT DATE: 20171208
